FAERS Safety Report 9938402 (Version 2)
Quarter: 2014Q1

REPORT INFORMATION
  Report Type: Spontaneous
  Country: US (occurrence: US)
  Receive Date: 20140303
  Receipt Date: 20140303
  Transmission Date: 20141002
  Serious: No
  Sender: FDA-Public Use
  Company Number: US-ABBVIE-12P-163-0995649-00

PATIENT
  Sex: 0

DRUGS (6)
  1. HUMIRA [Suspect]
     Indication: CROHN^S DISEASE
     Dosage: THREE INJECTIONS
  2. CIMZIA [Suspect]
     Indication: CROHN^S DISEASE
     Dosage: THREE INJECTIONS
  3. REMICADE [Suspect]
     Indication: CROHN^S DISEASE
  4. PREDNISONE [Concomitant]
     Indication: PRODUCT USED FOR UNKNOWN INDICATION
  5. 6-MP [Concomitant]
     Indication: CROHN^S DISEASE
  6. IMURAN [Concomitant]
     Indication: CROHN^S DISEASE

REACTIONS (13)
  - Nervous system disorder [Unknown]
  - Pain [Unknown]
  - Muscular weakness [Unknown]
  - Tremor [Unknown]
  - Dizziness [Unknown]
  - Pyrexia [Unknown]
  - Sensation of heaviness [Unknown]
  - Movement disorder [Unknown]
  - Blepharospasm [Unknown]
  - Vision blurred [Unknown]
  - Headache [Unknown]
  - Muscle spasms [Unknown]
  - Fatigue [Unknown]
